FAERS Safety Report 8429668-X (Version None)
Quarter: 2012Q2

REPORT INFORMATION
  Report Type: 
  Country: None (occurrence: None)
  Receive Date: 20120612
  Receipt Date: 20120607
  Transmission Date: 20120825
  Serious: No
  Sender: FDA-Public Use
  Company Number: US-TEVA-342249USA

PATIENT
  Sex: Female
  Weight: 65.376 kg

DRUGS (1)
  1. PLAN B ONE-STEP [Suspect]
     Indication: MENSTRUATION IRREGULAR
     Dosage: 1.5 MILLIGRAM;
     Route: 048
     Dates: start: 20120507, end: 20120507

REACTIONS (3)
  - DIZZINESS [None]
  - MENSTRUATION IRREGULAR [None]
  - FATIGUE [None]
